FAERS Safety Report 6431982-4 (Version None)
Quarter: 2009Q4

REPORT INFORMATION
  Report Type: 
  Country: None (occurrence: None)
  Receive Date: 20091109
  Receipt Date: 20091030
  Transmission Date: 20100525
  Serious: Yes (Other)
  Sender: FDA-Public Use
  Company Number: FR-JNJFOC-20091100111

PATIENT
  Age: 70 Year
  Sex: Female

DRUGS (3)
  1. TAVANIC [Suspect]
     Indication: DRUG USE FOR UNKNOWN INDICATION
     Route: 048
     Dates: start: 20091020
  2. CARDENSIEL [Concomitant]
     Route: 065
  3. FOSAMAX [Concomitant]
     Route: 065

REACTIONS (1)
  - SUDDEN HEARING LOSS [None]
